FAERS Safety Report 16557240 (Version 4)
Quarter: 2019Q4

REPORT INFORMATION
  Report Type: Spontaneous
  Country: BR (occurrence: BR)
  Receive Date: 20190711
  Receipt Date: 20191025
  Transmission Date: 20200122
  Serious: Yes (Hospitalization, Other)
  Sender: FDA-Public Use
  Company Number: BR-CELGENEUS-BRA-20190701962

PATIENT
  Age: 92 Year
  Sex: Male

DRUGS (1)
  1. VIDAZA [Suspect]
     Active Substance: AZACITIDINE
     Indication: MYELODYSPLASTIC SYNDROME
     Route: 058
     Dates: start: 20190415

REACTIONS (12)
  - Asthenia [Not Recovered/Not Resolved]
  - Fatigue [Unknown]
  - Haemoglobin decreased [Unknown]
  - Platelet count decreased [Unknown]
  - Lung disorder [Unknown]
  - Urinary tract disorder [Not Recovered/Not Resolved]
  - Respiratory tract infection fungal [Unknown]
  - Application site mass [Not Recovered/Not Resolved]
  - Eating disorder [Not Recovered/Not Resolved]
  - Bedridden [Unknown]
  - Cardiac disorder [Unknown]
  - Application site pain [Not Recovered/Not Resolved]

NARRATIVE: CASE EVENT DATE: 2019
